FAERS Safety Report 5827448-2 (Version None)
Quarter: 2008Q3

REPORT INFORMATION
  Report Type: 
  Country: None (occurrence: None)
  Receive Date: 20080730
  Receipt Date: 20080723
  Transmission Date: 20090109
  Serious: Yes (Hospitalization)
  Sender: FDA-Public Use
  Company Number: US-ASTRAZENECA-2008UW14507

PATIENT
  Age: 70 Year
  Sex: Female
  Weight: 58.8 kg

DRUGS (2)
  1. ARIMIDEX [Suspect]
     Indication: BREAST CANCER IN SITU
     Dosage: DAILY
     Route: 048
     Dates: start: 20060101
  2. BETALOR [Concomitant]
     Indication: HYPERTENSION
     Route: 048

REACTIONS (4)
  - MUSCULOSKELETAL STIFFNESS [None]
  - PAIN IN EXTREMITY [None]
  - THYROID CANCER [None]
  - WEIGHT INCREASED [None]
